FAERS Safety Report 7384282-2 (Version None)
Quarter: 2011Q1

REPORT INFORMATION
  Report Type: 
  Country: None (occurrence: None)
  Receive Date: 20110330
  Receipt Date: 20110328
  Transmission Date: 20110831
  Serious: Yes (Hospitalization)
  Sender: FDA-Public Use
  Company Number: FR-MERCK-1102FRA00105

PATIENT
  Age: 79 Year
  Sex: Female

DRUGS (10)
  1. JANUVIA [Suspect]
     Indication: TYPE 2 DIABETES MELLITUS
     Route: 048
     Dates: start: 20100709, end: 20110124
  2. LANSOPRAZOLE [Concomitant]
     Indication: GASTROOESOPHAGEAL REFLUX DISEASE
     Route: 048
  3. LOPERAMIDE OXIDE [Concomitant]
     Route: 048
  4. HYDROCHLOROTHIAZIDE [Concomitant]
     Indication: HYPERTENSION
     Route: 048
  5. HYDROXYZINE HYDROCHLORIDE [Concomitant]
     Route: 048
  6. CALCIUM CARBONATE AND CHOLECALCIFEROL [Concomitant]
     Route: 048
  7. BETAXOLOL HYDROCHLORIDE [Concomitant]
     Indication: HYPERTENSION
     Route: 048
  8. ZOLPIDEM TARTRATE [Concomitant]
     Route: 048
  9. POTASSIUM CHLORIDE [Concomitant]
     Route: 048
  10. PRAVASTATIN SODIUM [Concomitant]
     Indication: DYSLIPIDAEMIA
     Route: 048

REACTIONS (3)
  - PRURITUS [None]
  - PEMPHIGOID [None]
  - URTICARIA [None]
